FAERS Safety Report 10257610 (Version 1)
Quarter: 2014Q2

REPORT INFORMATION
  Report Type: Report from Study
  Country: DE (occurrence: DE)
  Receive Date: 20140625
  Receipt Date: 20140625
  Transmission Date: 20141212
  Serious: Yes (Death)
  Sender: FDA-Public Use
  Company Number: DE-BAYER-2014-093775

PATIENT
  Age: 86 Year
  Sex: Male

DRUGS (9)
  1. OMEPRAZOLE MAGNESIUM [Suspect]
     Dosage: UNK
  2. CIPROFLOXACIN [Suspect]
     Dosage: UNK
  3. VALPROIC ACID [Suspect]
     Indication: PARTIAL SEIZURES
     Dosage: UNK
  4. CLONAZEPAM [Suspect]
     Dosage: UNK
  5. L-DOPA [Suspect]
     Dosage: UNK
  6. CLOPIDOGREL [Suspect]
     Dosage: UNK
  7. FUROSEMIDE [Suspect]
     Dosage: UNK
  8. DICLOFENAC [Suspect]
  9. HEPARIN [Suspect]
     Dosage: UNK

REACTIONS (1)
  - Hepatic failure [Fatal]
